FAERS Safety Report 9271018 (Version 3)
Quarter: 2013Q2

REPORT INFORMATION
  Report Type: Spontaneous
  Country: ZA (occurrence: ZA)
  Receive Date: 20130506
  Receipt Date: 20130612
  Transmission Date: 20140414
  Serious: Yes (Other)
  Sender: FDA-Public Use
  Company Number: ZA-RANBAXY-2013RR-68410

PATIENT
  Age: 56 Year
  Sex: Female

DRUGS (3)
  1. PREDNISOLONE [Suspect]
     Indication: UVEITIS
     Dosage: 10 MG DAILY
     Route: 048
  2. AZATHIOPRINE [Suspect]
     Indication: UVEITIS
     Dosage: 100 MG DAILY
     Route: 065
  3. KENALOG [Suspect]
     Indication: MACULAR OEDEMA
     Dosage: 4 MG, SINGLE
     Route: 031
     Dates: start: 201102

REACTIONS (2)
  - Cytomegalovirus chorioretinitis [Recovering/Resolving]
  - Retinal detachment [Unknown]
